FAERS Safety Report 7691327-9 (Version None)
Quarter: 2011Q3

REPORT INFORMATION
  Report Type: 
  Country: None (occurrence: None)
  Receive Date: 20110818
  Receipt Date: 20110809
  Transmission Date: 20111222
  Serious: Yes (Other)
  Sender: FDA-Public Use
  Company Number: DE-NOVOPROD-328119

PATIENT

DRUGS (7)
  1. CANCOR [Concomitant]
     Indication: HYPERTENSION
     Dosage: 2.5 MG, QD
     Route: 048
  2. AMINOCAPROIC ACID [Suspect]
     Indication: PROCOAGULANT THERAPY
     Dosage: 50 MG/KG, LOADING DOSE
     Route: 042
  3. AMINOCAPROIC ACID [Suspect]
     Dosage: 25 MG/KG, PER HOUR
     Route: 042
  4. RAMIPRIL [Concomitant]
     Indication: HYPERTENSION
     Dosage: 2.5 MG, QD
     Route: 048
  5. NORVASC [Concomitant]
     Indication: HYPERTENSION
     Dosage: 10 MG, QD
     Route: 048
  6. NOVOSEVEN [Suspect]
     Indication: POST PROCEDURAL HAEMORRHAGE
     Dosage: 160 UG/KG, UNK
     Dates: start: 20080919, end: 20080919
  7. AMINOCAPROIC ACID [Suspect]
     Dosage: 5 G, IN THE EXTRACORPORAL CIRCUIT
     Route: 042

REACTIONS (1)
  - CONVULSION [None]
